FAERS Safety Report 4895601-0 (Version None)
Quarter: 2006Q1

REPORT INFORMATION
  Report Type: 
  Country: None (occurrence: None)
  Receive Date: 20060125
  Receipt Date: 20060117
  Transmission Date: 20060701
  Serious: Yes (Death)
  Sender: FDA-Public Use
  Company Number: 163-20785-06010368

PATIENT
  Age: 49 Year
  Sex: Female

DRUGS (1)
  1. THALOMID [Suspect]
     Indication: MULTIPLE MYELOMA
     Dosage: 50 MG- 150 MG, DAILY, ORAL
     Route: 048
     Dates: start: 20050525, end: 20050101

REACTIONS (3)
  - INSOMNIA [None]
  - LEUKAEMIA PLASMACYTIC [None]
  - PAIN [None]
